FAERS Safety Report 5423974-9 (Version None)
Quarter: 2007Q3

REPORT INFORMATION
  Report Type: 
  Country: None (occurrence: None)
  Receive Date: 20070727
  Receipt Date: 20060721
  Transmission Date: 20080115
  Serious: Yes (Death)
  Sender: FDA-Public Use
  Company Number: THYM-11020

PATIENT
  Sex: Female

DRUGS (1)
  1. THYMOGLOBULIN [Suspect]
     Indication: ORGAN TRANSPLANT
     Dates: start: 20060101, end: 20060101

REACTIONS (1)
  - INFECTION [None]
